FAERS Safety Report 5921339-4 (Version None)
Quarter: 2008Q4

REPORT INFORMATION
  Report Type: 
  Country: None (occurrence: None)
  Receive Date: 20081014
  Receipt Date: 20081007
  Transmission Date: 20090506
  Serious: Yes (Life-Threatening)
  Sender: FDA-Public Use
  Company Number: 2008JP004710

PATIENT
  Age: 73 Year
  Sex: Male

DRUGS (7)
  1. FUNGUARD(MICAFUNGIN) INJECTION [Suspect]
     Indication: PULMONARY MYCOSIS
     Dosage: 150 MG, UID/QD; IV DRIP
     Route: 041
     Dates: start: 20080927, end: 20080929
  2. CIPROXAN(CIPROFLOXACIN HYDROCHLORIDE) INJECTION [Suspect]
     Indication: PNEUMONIA
     Dosage: 300 MG, BID; IV DRIP
     Route: 041
     Dates: start: 20080926, end: 20080929
  3. PENTASA [Concomitant]
  4. AMARYL [Concomitant]
  5. CANDESARTAN CILEXETIL [Concomitant]
  6. MUCOSTA (REBAMIPIDE) [Concomitant]
  7. NEUER (CETRAXATE HYDROCHLORIDE) [Concomitant]

REACTIONS (2)
  - HEPATITIS ACUTE [None]
  - PULMONARY FUNCTION TEST ABNORMAL [None]
